FAERS Safety Report 7329501-3 (Version None)
Quarter: 2011Q1

REPORT INFORMATION
  Report Type: 
  Country: None (occurrence: None)
  Receive Date: 20110225
  Receipt Date: 20110225
  Transmission Date: 20110831
  Serious: Yes (Life-Threatening, Hospitalization)
  Sender: FDA-Public Use
  Company Number: None

PATIENT
  Age: 45 Year
  Sex: Female
  Weight: 54.4316 kg

DRUGS (1)
  1. ZYPREXA [Suspect]
     Indication: SEDATION
     Dosage: 10 TO 20 MGS. NIGHTLY PO
     Route: 048
     Dates: start: 20100828, end: 20110128

REACTIONS (6)
  - SWOLLEN TONGUE [None]
  - WEIGHT INCREASED [None]
  - MUSCLE SPASMS [None]
  - CLUSTER HEADACHE [None]
  - MUSCULOSKELETAL STIFFNESS [None]
  - CONVULSION [None]
